FAERS Safety Report 14191886 (Version 2)
Quarter: 2017Q4

REPORT INFORMATION
  Report Type: Report from Study
  Country: None (occurrence: CH)
  Receive Date: 20171115
  Receipt Date: 20171120
  Transmission Date: 20180321
  Serious: Yes (Death)
  Sender: FDA-Public Use
  Company Number: CH-ABBVIE-17K-151-2164864-00

PATIENT
  Sex: Female

DRUGS (3)
  1. DUODOPA [Suspect]
     Active Substance: CARBIDOPA\LEVODOPA
     Indication: PRODUCT USED FOR UNKNOWN INDICATION
     Dosage: 1 CASSETTE PER 24 HOURS
     Route: 050
     Dates: start: 201409
  2. PK-MERZ [Concomitant]
     Active Substance: AMANTADINE
     Indication: DYSKINESIA
     Route: 048
  3. CLOPIN [Concomitant]
     Indication: HALLUCINATION
     Route: 048

REACTIONS (13)
  - Dementia [Fatal]
  - Blood cholesterol increased [Unknown]
  - Protein total decreased [Unknown]
  - White blood cell count decreased [Unknown]
  - Device dislocation [Not Recovered/Not Resolved]
  - Asthenia [Fatal]
  - Neutrophil count increased [Unknown]
  - Blood lactate dehydrogenase increased [Unknown]
  - General physical health deterioration [Fatal]
  - Platelet count increased [Unknown]
  - Dyskinesia [Unknown]
  - Parkinson^s disease [Fatal]
  - Blood urea decreased [Unknown]

NARRATIVE: CASE EVENT DATE: 2017
